FAERS Safety Report 25869408 (Version 2)
Quarter: 2025Q4

REPORT INFORMATION
  Report Type: Spontaneous
  Country: CA (occurrence: CA)
  Receive Date: 20251001
  Receipt Date: 20251211
  Transmission Date: 20260118
  Serious: Yes (Other)
  Sender: PFIZER
  Company Number: CA-PFIZER INC-PV202500116479

PATIENT
  Age: 81 Year
  Sex: Female

DRUGS (1)
  1. RUXIENCE [Suspect]
     Active Substance: RITUXIMAB-PVVR
     Indication: Rheumatoid arthritis
     Dosage: 1000 MG
     Route: 042
     Dates: start: 20250619

REACTIONS (9)
  - Urinary tract infection enterococcal [Not Recovered/Not Resolved]
  - Renal impairment [Not Recovered/Not Resolved]
  - Immunosuppression [Unknown]
  - Asthenia [Unknown]
  - Malaise [Unknown]
  - Skin discolouration [Unknown]
  - Decreased appetite [Unknown]
  - General physical health deterioration [Not Recovered/Not Resolved]
  - Herpes zoster [Unknown]

NARRATIVE: CASE EVENT DATE: 20250101
